FAERS Safety Report 8812891 (Version 1)
Quarter: 2012Q4

REPORT INFORMATION
  Report Type: 
  Country: BR (occurrence: BR)
  Receive Date: 20120927
  Receipt Date: 20120927
  Transmission Date: 20130627
  Serious: Yes (Other)
  Sender: FDA-Public Use
  Company Number: BR-ROCHE-1138373

PATIENT
  Age: 60 Year
  Sex: Female
  Weight: 63.06 kg

DRUGS (1)
  1. XOLAIR [Suspect]
     Indication: ASTHMA
     Route: 065

REACTIONS (2)
  - Obstructive airways disorder [Recovering/Resolving]
  - Blood glucose increased [Recovering/Resolving]
